FAERS Safety Report 21311243 (Version 1)
Quarter: 2022Q3

REPORT INFORMATION
  Report Type: Spontaneous
  Country: US (occurrence: None)
  Receive Date: 20220909
  Receipt Date: 20220909
  Transmission Date: 20221027
  Serious: No
  Sender: FDA-Public Use
  Company Number: US-FARMAPROD-202202-0248

PATIENT
  Sex: Female

DRUGS (17)
  1. OXERVATE [Suspect]
     Active Substance: CENEGERMIN-BKBJ
     Indication: Neurotrophic keratopathy
     Route: 047
     Dates: start: 20220125
  2. OXERVATE [Suspect]
     Active Substance: CENEGERMIN-BKBJ
     Indication: Hypoaesthesia eye
  3. REGENER EYES [Concomitant]
  4. REFRESH CELLUVISC [Concomitant]
     Active Substance: CARBOXYMETHYLCELLULOSE SODIUM
  5. REFRESH DIGITAL [Concomitant]
     Active Substance: CARBOXYMETHYLCELLULOSE SODIUM\GLYCERIN\POLYSORBATE 80
  6. RESTASIS [Concomitant]
     Active Substance: CYCLOSPORINE
  7. DOXYCYCLINE HYCLATE [Concomitant]
     Active Substance: DOXYCYCLINE HYCLATE
  8. LEVOTHYROXINE [Concomitant]
     Active Substance: LEVOTHYROXINE
  9. VITAMIN C [Concomitant]
     Active Substance: ASCORBIC ACID
  10. OMEGA 3 [Concomitant]
     Active Substance: CAPSAICIN
  11. AMLODIPINE BESYLATE [Concomitant]
     Active Substance: AMLODIPINE BESYLATE
  12. VITAMINS [Concomitant]
     Active Substance: VITAMINS
  13. LISINOPRIL [Concomitant]
     Active Substance: LISINOPRIL
  14. PREDNISOLONE [Concomitant]
     Active Substance: PREDNISOLONE
  15. ASPIRIN [Concomitant]
     Active Substance: ASPIRIN
  16. MAGNESIUM [Concomitant]
     Active Substance: MAGNESIUM
  17. VISION FORMULA [Concomitant]

REACTIONS (1)
  - Ocular hyperaemia [Unknown]
